FAERS Safety Report 15005428 (Version 1)
Quarter: 2018Q2

REPORT INFORMATION
  Report Type: Report from Study
  Country: CZ (occurrence: CZ)
  Receive Date: 20180613
  Receipt Date: 20180613
  Transmission Date: 20180711
  Serious: Yes (Hospitalization, Other)
  Sender: FDA-Public Use
  Company Number: CZ-TEVA-2018-CZ-906364

PATIENT
  Age: 59 Year
  Sex: Male

DRUGS (15)
  1. 5-FU [Suspect]
     Active Substance: FLUOROURACIL
     Route: 041
     Dates: start: 20151006
  2. 5-FU [Suspect]
     Active Substance: FLUOROURACIL
     Route: 041
     Dates: start: 20150804
  3. IRINOTECAN [Suspect]
     Active Substance: IRINOTECAN
     Route: 041
     Dates: start: 20151006, end: 20151006
  4. LEUCOVORIN. [Suspect]
     Active Substance: LEUCOVORIN
     Route: 041
     Dates: start: 20151006, end: 20151006
  5. AFLIBERCEPT [Suspect]
     Active Substance: AFLIBERCEPT
     Indication: COLORECTAL CANCER METASTATIC
     Route: 041
     Dates: start: 20150804, end: 20150804
  6. APAURIN [Concomitant]
     Active Substance: DIAZEPAM
     Indication: PROPHYLAXIS
     Route: 065
     Dates: start: 20151006, end: 20151006
  7. 5-FU [Suspect]
     Active Substance: FLUOROURACIL
     Indication: COLORECTAL CANCER METASTATIC
     Route: 040
     Dates: start: 20150804, end: 20150804
  8. OMNIC TOCAS [Concomitant]
     Active Substance: TAMSULOSIN HYDROCHLORIDE
     Indication: PROPHYLAXIS
     Route: 065
     Dates: start: 2011
  9. QUAMATEL [Concomitant]
     Active Substance: FAMOTIDINE
     Indication: PROPHYLAXIS
     Route: 065
     Dates: start: 20151006, end: 20151006
  10. EMEND [Concomitant]
     Active Substance: APREPITANT
     Indication: PROPHYLAXIS
     Route: 065
     Dates: start: 20151006, end: 20151006
  11. IRINOTECAN [Suspect]
     Active Substance: IRINOTECAN
     Indication: COLORECTAL CANCER METASTATIC
     Route: 041
     Dates: start: 20150804, end: 20150804
  12. LEUCOVORIN. [Suspect]
     Active Substance: LEUCOVORIN
     Indication: COLORECTAL CANCER METASTATIC
     Route: 041
     Dates: start: 20150804, end: 20150804
  13. NEURONTIN [Concomitant]
     Active Substance: GABAPENTIN
     Route: 065
     Dates: start: 20140903
  14. 5-FU [Suspect]
     Active Substance: FLUOROURACIL
     Route: 040
     Dates: start: 20151006, end: 20151006
  15. METFORMIN [Concomitant]
     Active Substance: METFORMIN HYDROCHLORIDE
     Route: 065
     Dates: start: 2009

REACTIONS (2)
  - Anaemia [Not Recovered/Not Resolved]
  - Pelvic abscess [Recovered/Resolved]

NARRATIVE: CASE EVENT DATE: 20151014
